FAERS Safety Report 5358700-5 (Version None)
Quarter: 2007Q2

REPORT INFORMATION
  Report Type: 
  Country: None (occurrence: None)
  Receive Date: 20070601
  Receipt Date: 20070219
  Transmission Date: 20071010
  Serious: No
  Sender: FDA-Public Use
  Company Number: PHEH2007US02191

PATIENT
  Age: 62 Year
  Sex: Female

DRUGS (3)
  1. ENABLEX [Suspect]
     Indication: HYPERTONIC BLADDER
     Dosage: 7.5 MG, QD, ORAL; 15 MG, QD, ORAL
     Route: 048
     Dates: start: 20061201, end: 20070208
  2. ENABLEX [Suspect]
     Indication: HYPERTONIC BLADDER
     Dosage: 7.5 MG, QD, ORAL; 15 MG, QD, ORAL
     Route: 048
     Dates: start: 20070209, end: 20070217
  3. PLETAL [Suspect]
     Indication: PERIPHERAL ARTERIAL OCCLUSIVE DISEASE
     Dates: start: 20070123, end: 20070217

REACTIONS (2)
  - DRUG INEFFECTIVE [None]
  - VISION BLURRED [None]
